FAERS Safety Report 9153013 (Version 1)
Quarter: 2013Q1

REPORT INFORMATION
  Report Type: Spontaneous
  Country: US (occurrence: None)
  Receive Date: 20130301
  Receipt Date: 20130301
  Transmission Date: 20140127
  Serious: Yes (Other)
  Sender: FDA-Public Use
  Company Number: None

PATIENT
  Age: 36 Year
  Sex: Female
  Weight: 56.7 kg

DRUGS (2)
  1. LAMICTAL 25MG NORTHSTAR [Suspect]
     Indication: MAJOR DEPRESSION
     Dosage: 25MG QD PO
     Route: 048
     Dates: start: 20110331, end: 20120501
  2. LAMICTAL 25MG NORTHSTAR [Suspect]
     Indication: BIPOLAR DISORDER
     Dosage: 25MG QD PO
     Route: 048
     Dates: start: 20110331, end: 20120501

REACTIONS (5)
  - Hypoaesthesia [None]
  - Paraesthesia oral [None]
  - Paraesthesia oral [None]
  - Paraesthesia [None]
  - Intranasal paraesthesia [None]
